FAERS Safety Report 8326966-5 (Version None)
Quarter: 2012Q2

REPORT INFORMATION
  Report Type: 
  Country: None (occurrence: None)
  Receive Date: 20120501
  Receipt Date: 20120420
  Transmission Date: 20120825
  Serious: Yes (Other)
  Sender: FDA-Public Use
  Company Number: JP-VERTEX PHARMACEUTICALS INC.-AE-2012-005830

PATIENT
  Age: 51 Year
  Sex: Male

DRUGS (13)
  1. EBASTEL OD [Concomitant]
     Route: 048
     Dates: end: 20120405
  2. REBETOL [Concomitant]
     Indication: HEPATITIS C
     Route: 048
     Dates: start: 20120302
  3. PEG-INTRON [Concomitant]
     Route: 051
     Dates: start: 20120309, end: 20120309
  4. PEG-INTRON [Concomitant]
     Route: 051
     Dates: start: 20120330, end: 20120330
  5. URSO 250 [Concomitant]
     Route: 048
     Dates: start: 20120413
  6. PEG-INTRON [Concomitant]
     Route: 051
     Dates: start: 20120316, end: 20120323
  7. PEG-INTRON [Concomitant]
     Route: 051
     Dates: start: 20120406
  8. OLMESARTAN MEDOXOMIL [Concomitant]
     Route: 048
  9. URSO 250 [Concomitant]
     Route: 048
     Dates: end: 20120412
  10. PROMACTA [Concomitant]
     Route: 048
  11. TELAVIC (TELAPREVIR) [Suspect]
     Indication: HEPATITIS C
     Route: 048
     Dates: start: 20120302
  12. PEG-INTRON [Concomitant]
     Indication: HEPATITIS C
     Route: 051
     Dates: start: 20120302, end: 20120302
  13. ALLOPURINOL [Concomitant]
     Indication: HYPERURICAEMIA
     Route: 048
     Dates: start: 20120303, end: 20120412

REACTIONS (6)
  - HAEMOGLOBIN DECREASED [None]
  - ERYTHEMA [None]
  - PRURITUS [None]
  - HYPERURICAEMIA [None]
  - PLATELET COUNT DECREASED [None]
  - NEUTROPHIL COUNT DECREASED [None]
